FAERS Safety Report 5260924-2 (Version None)
Quarter: 2007Q1

REPORT INFORMATION
  Report Type: 
  Country: None (occurrence: None)
  Receive Date: 20070309
  Receipt Date: 20070301
  Transmission Date: 20070707
  Serious: Yes (Death, Life-Threatening)
  Sender: FDA-Public Use
  Company Number: HQWYE352101MAR07

PATIENT
  Sex: Female

DRUGS (23)
  1. CORDARONE [Suspect]
     Indication: ACUTE CORONARY SYNDROME
     Route: 042
     Dates: start: 20070201, end: 20070201
  2. CORDARONE [Interacting]
     Route: 042
     Dates: start: 20070203, end: 20070204
  3. ZOLOFT [Concomitant]
     Dosage: DOSE UNKNOWN
     Route: 065
     Dates: end: 20070201
  4. VIRLIX [Concomitant]
     Dosage: DOSE UNKNOWN
     Route: 065
     Dates: end: 20070201
  5. SOLIAN [Concomitant]
     Dosage: DOSE UNKNOWN
     Route: 065
     Dates: end: 20070201
  6. RENAGEL [Concomitant]
     Dosage: DOSE UNKNOWN
     Route: 065
     Dates: end: 20070201
  7. NOCTRAN 10 [Concomitant]
     Dosage: DOSE UNKNOWN
     Route: 065
     Dates: end: 20070201
  8. KAYEXALATE [Concomitant]
     Dosage: DOSE UNKNOWN
     Route: 065
     Dates: end: 20070201
  9. ACETAMINOPHEN AND TRAMADOL HCL [Concomitant]
     Dosage: DOSE UNKNOWN
     Route: 065
     Dates: end: 20070201
  10. ASPEGIC 1000 [Concomitant]
     Dosage: DOSE UNKNOWN
     Route: 065
     Dates: end: 20070201
  11. MIXTARD HUMAN 70/30 [Concomitant]
     Dosage: DOSE UNKNOWN
     Route: 065
     Dates: end: 20070201
  12. NEXIUM [Concomitant]
     Dosage: DOSE UNKNOWN
     Route: 065
     Dates: end: 20070201
  13. HEXAQUINE [Concomitant]
     Dosage: DOSE UNKNOWN
     Route: 065
     Dates: end: 20070205
  14. EUCALCIC [Concomitant]
     Dosage: DOSE UNKNOWN
     Route: 065
     Dates: end: 20070201
  15. CLERIDIUM [Concomitant]
     Dosage: DOSE UNKNOWN
     Route: 065
     Dates: end: 20070201
  16. CIPROFLOXACIN [Concomitant]
     Dosage: DOSE UNKNOWN
     Route: 065
     Dates: start: 20070203, end: 20070205
  17. AUGMENTIN [Concomitant]
     Dosage: DOSE UNKNOWN
     Route: 065
     Dates: start: 20070203, end: 20070205
  18. ACTRAPID HUMAN [Concomitant]
     Dosage: DOSE UNKNOWN
     Route: 065
     Dates: start: 20070203, end: 20070205
  19. HEPARIN [Concomitant]
     Dosage: DOSE UNKNOWN
     Route: 065
     Dates: start: 20070203, end: 20070205
  20. KARDEGIC [Concomitant]
     Dosage: DOSE UNKNOWN
     Route: 065
     Dates: start: 20070203, end: 20070205
  21. PLAVIX [Concomitant]
     Dosage: DOSE UNKNOWN
     Route: 065
     Dates: start: 20070203, end: 20070205
  22. TENORMIN [Concomitant]
     Dosage: DOSE UNKNOWN
     Route: 065
     Dates: start: 20070203, end: 20070205
  23. TAHOR [Interacting]
     Dosage: 80 MG, FREQUENCY UNSPECIFIED
     Route: 048
     Dates: start: 20070201, end: 20070204

REACTIONS (4)
  - CYTOLYTIC HEPATITIS [None]
  - DRUG INTERACTION [None]
  - MULTI-ORGAN FAILURE [None]
  - RHABDOMYOLYSIS [None]
